FAERS Safety Report 4456095-2 (Version None)
Quarter: 2004Q3

REPORT INFORMATION
  Report Type: 
  Country: None (occurrence: None)
  Receive Date: 20040922
  Receipt Date: 20040712
  Transmission Date: 20050211
  Serious: Yes (Other)
  Sender: FDA-Public Use
  Company Number: PHBS2004JP09420

PATIENT
  Age: 30 Year
  Sex: Female
  Weight: 58 kg

DRUGS (10)
  1. TEGRETOL [Suspect]
     Indication: EPILEPSY
     Dosage: 200 MG, QD
     Route: 048
  2. TEGRETOL [Suspect]
     Dosage: 400 MG/DAY
     Route: 048
  3. ALEVIATIN [Concomitant]
     Dosage: 100 MG
     Route: 048
  4. ALEVIATIN [Concomitant]
     Dosage: 200 MG
     Route: 048
  5. PHENOBAL [Concomitant]
     Dosage: 60 MG
     Route: 048
  6. PHENOBAL [Concomitant]
     Dosage: 90 MG
     Route: 048
  7. PHENOBAL [Concomitant]
     Dosage: 120 MG
     Route: 048
  8. CYANOCOBALAMIN [Concomitant]
     Dosage: 500 UG
     Route: 048
  9. VITAMEDIN CAPSULE [Concomitant]
     Dosage: 50 MG
     Route: 048
  10. ALLOPURINOL TAB [Concomitant]
     Dosage: 250 MG
     Route: 048

REACTIONS (2)
  - HYPERPROLACTINAEMIA [None]
  - MENSTRUATION IRREGULAR [None]
